FAERS Safety Report 14655662 (Version 1)
Quarter: 2018Q1

REPORT INFORMATION
  Report Type: Spontaneous
  Country: FR (occurrence: FR)
  Receive Date: 20180319
  Receipt Date: 20180319
  Transmission Date: 20180509
  Serious: Yes (Other)
  Sender: FDA-Public Use
  Company Number: FR-TEVA-2018-FR-866913

PATIENT
  Age: 24 Year
  Sex: Female

DRUGS (1)
  1. COPAXONE [Suspect]
     Active Substance: GLATIRAMER ACETATE
     Indication: MULTIPLE SCLEROSIS
     Dosage: STARTED SIX MONTHS EARLIER
     Route: 065

REACTIONS (10)
  - Blindness transient [Recovered/Resolved]
  - Hypersensitivity [Unknown]
  - Malaise [Unknown]
  - Injection site mass [Unknown]
  - Abdominal distension [Unknown]
  - Feeling hot [Unknown]
  - Injection site erythema [Not Recovered/Not Resolved]
  - Injection site discolouration [Recovering/Resolving]
  - Vomiting [Recovered/Resolved]
  - Injection site pain [Not Recovered/Not Resolved]

NARRATIVE: CASE EVENT DATE: 20180228
